FAERS Safety Report 16084950 (Version 2)
Quarter: 2019Q2

REPORT INFORMATION
  Report Type: Spontaneous
  Country: US (occurrence: US)
  Receive Date: 20190318
  Receipt Date: 20190403
  Transmission Date: 20190711
  Serious: Yes (Death, Hospitalization, Other)
  Sender: FDA-Public Use
  Company Number: US-HORIZON-ACT-0059-2019

PATIENT
  Age: 29 Year
  Sex: Male

DRUGS (4)
  1. ACTIMMUNE [Suspect]
     Active Substance: INTERFERON GAMMA-1B
     Indication: CHRONIC GRANULOMATOUS DISEASE
     Dosage: 100 ?G THREE TIMES WEEKLY
     Route: 041
     Dates: start: 20150127
  2. MINOCYCLINE [Concomitant]
     Active Substance: MINOCYCLINE\MINOCYCLINE HYDROCHLORIDE
  3. CIPRO [Concomitant]
     Active Substance: CIPROFLOXACIN HYDROCHLORIDE
  4. POSACONAZOLE [Concomitant]
     Active Substance: POSACONAZOLE

REACTIONS (18)
  - Death [Fatal]
  - Pyrexia [Unknown]
  - Vomiting [Recovered/Resolved]
  - Delirium [Unknown]
  - Dialysis [Unknown]
  - Malaise [Unknown]
  - Fatigue [Unknown]
  - Hepatic enzyme decreased [Unknown]
  - Mechanical ventilation [Unknown]
  - Infection [Unknown]
  - Nausea [Unknown]
  - Loss of consciousness [Unknown]
  - Haemoglobin decreased [Unknown]
  - Renal failure [Unknown]
  - Dehydration [Recovered/Resolved]
  - Transfusion [Unknown]
  - Cough [Unknown]
  - Asthenia [Unknown]

NARRATIVE: CASE EVENT DATE: 201903
